FAERS Safety Report 5305786-X (Version None)
Quarter: 2007Q2

REPORT INFORMATION
  Report Type: 
  Country: None (occurrence: None)
  Receive Date: 20070420
  Receipt Date: 20070420
  Transmission Date: 20071010
  Serious: Yes (Death)
  Sender: FDA-Public Use
  Company Number: None

PATIENT
  Age: 44 Year
  Sex: Male
  Weight: 99.7913 kg

DRUGS (1)
  1. XYREM [Suspect]
     Indication: INSOMNIA
     Dates: start: 20051108, end: 20051108

REACTIONS (1)
  - DRUG TOXICITY [None]
